FAERS Safety Report 5188219-6 (Version None)
Quarter: 2006Q4

REPORT INFORMATION
  Report Type: 
  Country: None (occurrence: None)
  Receive Date: 20061221
  Receipt Date: 20061115
  Transmission Date: 20070319
  Serious: Yes (Other)
  Sender: FDA-Public Use
  Company Number: PHBS2006BE17824

PATIENT
  Age: 54 Year
  Sex: Male

DRUGS (7)
  1. AREDIA [Suspect]
     Indication: MULTIPLE MYELOMA
     Dosage: 90 MG, UNK
     Route: 065
     Dates: start: 19981020, end: 20021011
  2. ZOMETA [Suspect]
     Indication: MULTIPLE MYELOMA
     Dosage: 4 MG, UNK
     Route: 065
     Dates: start: 20021115
  3. INTRON A [Concomitant]
     Dosage: 3 MIU, QW2
     Route: 058
     Dates: start: 19980612, end: 20040101
  4. CONTRAMAL [Concomitant]
     Indication: PAIN
     Dates: start: 19980301
  5. CITALOPRAM HYDROBROMIDE [Concomitant]
     Dosage: 0.5 DF, QD
  6. TOLINDOL [Concomitant]
  7. ZANTAC [Concomitant]
     Dates: start: 20020322, end: 20020525

REACTIONS (3)
  - DEPRESSION [None]
  - HIP ARTHROPLASTY [None]
  - OSTEONECROSIS [None]
